FAERS Safety Report 5097911-3 (Version None)
Quarter: 2006Q3

REPORT INFORMATION
  Report Type: 
  Country: None (occurrence: None)
  Receive Date: 20060905
  Receipt Date: 20060905
  Transmission Date: 20061208
  Serious: Yes (Hospitalization)
  Sender: FDA-Public Use
  Company Number: None

PATIENT
  Age: 57 Year
  Sex: Male
  Weight: 121.564 kg

DRUGS (8)
  1. DIGOXIN [Suspect]
     Indication: ATRIAL FIBRILLATION
     Dosage: 0.25 MG DAILY PO
     Route: 048
     Dates: start: 20041101, end: 20060901
  2. PANTOPRAZOLE SODIUM [Concomitant]
  3. FUROSEMIDE [Concomitant]
  4. POTASSIUM CHLORIDE [Concomitant]
  5. DIAZEPAM [Concomitant]
  6. HYDROCODONE BITARTRATE + ACETAMINOPHEN [Concomitant]
  7. VARDENAFIL [Concomitant]
  8. INDOMETHACIN [Concomitant]

REACTIONS (7)
  - BRADYCARDIA [None]
  - DYSPNOEA [None]
  - FEELING ABNORMAL [None]
  - HYPOTENSION [None]
  - OEDEMA PERIPHERAL [None]
  - PRODUCTIVE COUGH [None]
  - THERAPEUTIC AGENT TOXICITY [None]
